FAERS Safety Report 5860594-6 (Version None)
Quarter: 2008Q3

REPORT INFORMATION
  Report Type: 
  Country: None (occurrence: None)
  Receive Date: 20080826
  Receipt Date: 20080812
  Transmission Date: 20090109
  Serious: Yes (Other)
  Sender: FDA-Public Use
  Company Number: 2008SI000234

PATIENT
  Age: 56 Year
  Sex: Female

DRUGS (17)
  1. SORIATANE [Suspect]
     Indication: PSORIASIS
     Dosage: 10 MG;QD;PO
     Route: 048
     Dates: start: 20080101, end: 20080812
  2. TRAZODONE HCL [Concomitant]
  3. PREVACID [Concomitant]
  4. PLAVIX [Concomitant]
  5. GLIMEPIRIDE [Concomitant]
  6. FUROSEMIDE [Concomitant]
  7. METFORMIN HCL [Concomitant]
  8. CYMBALTA [Concomitant]
  9. ALPRAZOLAM [Concomitant]
  10. TIZANIDINE HCL [Concomitant]
  11. WELLBUTRIN XL [Concomitant]
  12. ABILIFY [Concomitant]
  13. ISOSORBIDE [Concomitant]
  14. VYTORIN [Concomitant]
  15. COREG [Concomitant]
  16. ALTACE [Concomitant]
  17. HUMALOG [Concomitant]

REACTIONS (1)
  - SYNCOPE [None]
